FAERS Safety Report 5037976-8 (Version None)
Quarter: 2006Q2

REPORT INFORMATION
  Report Type: 
  Country: None (occurrence: None)
  Receive Date: 20060601
  Receipt Date: 20060203
  Transmission Date: 20061013
  Serious: No
  Sender: FDA-Public Use
  Company Number: 2006PV008091

PATIENT
  Age: 70 Year
  Sex: Female
  Weight: 82.5547 kg

DRUGS (3)
  1. BYETTA [Suspect]
     Indication: DIABETES MELLITUS NON-INSULIN-DEPENDENT
     Dosage: SEE IMAGE
     Route: 058
     Dates: start: 20051214, end: 20060113
  2. BYETTA [Suspect]
     Indication: DIABETES MELLITUS NON-INSULIN-DEPENDENT
     Dosage: SEE IMAGE
     Route: 058
     Dates: start: 20060114
  3. GLUCOVANCE [Concomitant]

REACTIONS (10)
  - BLOOD GLUCOSE INCREASED [None]
  - CHILLS [None]
  - DIZZINESS [None]
  - DYSARTHRIA [None]
  - ERUCTATION [None]
  - FEELING HOT [None]
  - HYPOAESTHESIA [None]
  - MUSCLE SPASMS [None]
  - NAUSEA [None]
  - PARAESTHESIA [None]
